FAERS Safety Report 7798129-3 (Version None)
Quarter: 2011Q4

REPORT INFORMATION
  Report Type: 
  Country: None (occurrence: None)
  Receive Date: 20111005
  Receipt Date: 20111003
  Transmission Date: 20120403
  Serious: Yes (Death, Hospitalization, Other)
  Sender: FDA-Public Use
  Company Number: BR-PFIZER INC-2011235553

PATIENT
  Age: 15 Year
  Sex: Female

DRUGS (10)
  1. NIFEDIPINE [Suspect]
     Dosage: 1 MG, UNK
  2. METHYLDOPA [Suspect]
     Dosage: 500 MG, UNK
  3. DICLOFENAC [Concomitant]
  4. PARACETAMOL [Concomitant]
     Dosage: 750 MG, UNK
  5. OXYTOCIN [Concomitant]
  6. CEPHALEXIN [Concomitant]
  7. BETAMETHASONE [Concomitant]
  8. HALOPERIDOL [Concomitant]
  9. TENOXICAM [Concomitant]
  10. PROMETHAZINE [Concomitant]

REACTIONS (2)
  - CEREBRAL INFARCTION [None]
  - HYPERTENSION [None]
